FAERS Safety Report 5850602-0 (Version None)
Quarter: 2008Q3

REPORT INFORMATION
  Report Type: 
  Country: None (occurrence: None)
  Receive Date: 20080820
  Receipt Date: 20080815
  Transmission Date: 20090109
  Serious: Yes (Death, Life-Threatening)
  Sender: FDA-Public Use
  Company Number: DE-JNJFOC-20060804331

PATIENT
  Sex: Male

DRUGS (6)
  1. RISPERDAL [Suspect]
     Indication: AGITATION
     Route: 065
     Dates: start: 20060424, end: 20060607
  2. RISPERDAL [Suspect]
     Indication: DEMENTIA ALZHEIMER'S TYPE
     Route: 065
     Dates: start: 20060424, end: 20060607
  3. CEFACLOR [Concomitant]
  4. LORAZEPAM [Concomitant]
  5. OMEPRAZOLE [Concomitant]
  6. PIPAMPERONE [Concomitant]

REACTIONS (5)
  - BRONCHITIS [None]
  - CHILLS [None]
  - MUSCLE RIGIDITY [None]
  - PNEUMONIA [None]
  - SALIVARY HYPERSECRETION [None]
